FAERS Safety Report 23989003 (Version 1)
Quarter: 2024Q2

REPORT INFORMATION
  Report Type: Report from Study
  Country: US (occurrence: US)
  Receive Date: 20240619
  Receipt Date: 20240619
  Transmission Date: 20240716
  Serious: Yes (Other)
  Sender: FDA-Public Use
  Company Number: US-ABBVIE-5803953

PATIENT
  Sex: Male

DRUGS (1)
  1. HUMIRA [Suspect]
     Active Substance: ADALIMUMAB
     Indication: Product used for unknown indication
     Route: 058
     Dates: start: 20240407

REACTIONS (8)
  - Eye movement disorder [Recovering/Resolving]
  - Retro-orbital neoplasm [Recovering/Resolving]
  - Tremor [Unknown]
  - Ocular vasculitis [Recovering/Resolving]
  - Asthenia [Unknown]
  - Syncope [Unknown]
  - Fatigue [Unknown]
  - Withdrawal syndrome [Unknown]

NARRATIVE: CASE EVENT DATE: 20240101
